FAERS Safety Report 5224144-X (Version None)
Quarter: 2007Q1

REPORT INFORMATION
  Report Type: 
  Country: None (occurrence: None)
  Receive Date: 20070130
  Receipt Date: 20070124
  Transmission Date: 20070707
  Serious: Yes (Other)
  Sender: FDA-Public Use
  Company Number: ES-SANOFI-SYNTHELABO-A01200700806

PATIENT
  Age: 40 Year
  Sex: Female
  Weight: 50 kg

DRUGS (2)
  1. XELODA [Concomitant]
     Indication: RECTAL CANCER STAGE 0
     Route: 048
     Dates: start: 20060922, end: 20061006
  2. ELOXATIN [Suspect]
     Indication: RECTAL CANCER STAGE 0
     Route: 042
     Dates: start: 20060922, end: 20060922

REACTIONS (1)
  - BLINDNESS [None]
